FAERS Safety Report 6383376-8 (Version None)
Quarter: 2009Q4

REPORT INFORMATION
  Report Type: 
  Country: None (occurrence: None)
  Receive Date: 20091001
  Receipt Date: 20071205
  Transmission Date: 20100525
  Serious: Yes (Other)
  Sender: FDA-Public Use
  Company Number: US-ASTRAZENECA-2007UW05472

PATIENT
  Age: 595 Month
  Sex: Female
  Weight: 87.5 kg

DRUGS (14)
  1. SEROQUEL [Suspect]
     Indication: BIPOLAR DISORDER
     Route: 048
     Dates: start: 20030301, end: 20041001
  2. SEROQUEL [Suspect]
     Indication: DEPRESSION
     Route: 048
     Dates: start: 20030301, end: 20041001
  3. SEROQUEL [Suspect]
     Indication: SCHIZOPHRENIA
     Route: 048
     Dates: start: 20030301, end: 20041001
  4. SEROQUEL [Suspect]
     Route: 048
     Dates: start: 20041012
  5. SEROQUEL [Suspect]
     Route: 048
     Dates: start: 20041012
  6. SEROQUEL [Suspect]
     Route: 048
     Dates: start: 20041012
  7. RISPERDAL [Concomitant]
     Dosage: 3 MG - 4 MG
     Dates: start: 20041012
  8. ZYLOPRIM [Concomitant]
  9. PREMARIN [Concomitant]
     Indication: MENOPAUSAL SYMPTOMS
  10. PAXIL CR [Concomitant]
     Dosage: 25 MG TO 37.5 MG
     Dates: start: 20041012
  11. WELLBUTRIN SR [Concomitant]
     Indication: SMOKING CESSATION THERAPY
     Dates: start: 20041012
  12. ASPIRIN [Concomitant]
     Indication: ANGINA PECTORIS
  13. ALPRAZOLAM [Concomitant]
     Dates: start: 20041012
  14. NEURONTIN [Concomitant]
     Indication: NEUROPATHY PERIPHERAL
     Dosage: TWO TIMES A DAY
     Dates: start: 20050308

REACTIONS (2)
  - NEUROPATHY PERIPHERAL [None]
  - TYPE 2 DIABETES MELLITUS [None]
